FAERS Safety Report 9190280 (Version 2)
Quarter: 2013Q2

REPORT INFORMATION
  Report Type: Report from Study
  Country: JP (occurrence: JP)
  Receive Date: 20130326
  Receipt Date: 20130515
  Transmission Date: 20140414
  Serious: Yes (Death)
  Sender: FDA-Public Use
  Company Number: JP-BRISTOL-MYERS SQUIBB COMPANY-17383647

PATIENT
  Age: 86 Year
  Sex: Female

DRUGS (9)
  1. ORENCIA FOR INJ 250 MG/VIAL [Suspect]
     Indication: RHEUMATOID ARTHRITIS
     Dosage: 11JUL12,26JUL,09AUG,06SEP,04OCT,01NOV,06DEC,10JAN13,07FEB2013:500MG
     Route: 042
     Dates: start: 20120711
  2. METHOTREXATE [Suspect]
     Indication: RHEUMATOID ARTHRITIS
     Dates: start: 20120706
  3. BENIDIPINE HCL [Concomitant]
     Dates: start: 2002
  4. BUCILLAMINE [Concomitant]
  5. ALENDRONATE [Concomitant]
     Dates: start: 2002
  6. REBAMIPIDE [Concomitant]
     Dates: start: 2002
  7. BIOFERMIN R [Concomitant]
     Dates: start: 2002
  8. CELCOX [Concomitant]
     Indication: RHEUMATOID ARTHRITIS
     Dates: start: 20120124, end: 20120726
  9. SENNOSIDE [Concomitant]
     Dates: start: 2002

REACTIONS (1)
  - Sudden death [Fatal]
